FAERS Safety Report 5450979-4 (Version None)
Quarter: 2007Q3

REPORT INFORMATION
  Report Type: 
  Country: None (occurrence: None)
  Receive Date: 20070913
  Receipt Date: 20070830
  Transmission Date: 20080115
  Serious: Yes (Hospitalization)
  Sender: FDA-Public Use
  Company Number: US-JNJFOC-20061203572

PATIENT
  Sex: Female
  Weight: 67.13 kg

DRUGS (1)
  1. ORTHO EVRA [Suspect]
     Indication: MENORRHAGIA
     Route: 062

REACTIONS (2)
  - PULMONARY EMBOLISM [None]
  - TRANSAMINASES INCREASED [None]
